FAERS Safety Report 8294141-9 (Version None)
Quarter: 2012Q2

REPORT INFORMATION
  Report Type: 
  Country: None (occurrence: None)
  Receive Date: 20120418
  Receipt Date: 20120412
  Transmission Date: 20120825
  Serious: Yes (Other)
  Sender: FDA-Public Use
  Company Number: PHHY2011US34817

PATIENT
  Sex: Female

DRUGS (10)
  1. VITAMIN D [Concomitant]
     Dosage: UNK UKN, UNK
  2. PLAVIX [Concomitant]
     Dosage: 5 MG, UNK
     Route: 042
  3. VITAMIN TAB [Concomitant]
     Dosage: UNK UKN, UNK
  4. CALCIUM CARBONATE [Concomitant]
     Dosage: UNK UKN, UNK
  5. RECLAST [Suspect]
     Dosage: UNK UKN, UNK
     Route: 042
     Dates: start: 20111101
  6. MULTI-VITAMINS [Concomitant]
     Dosage: UNK UKN, UNK
  7. RECLAST [Suspect]
     Dosage: UNK UKN, UNK
     Route: 042
     Dates: start: 20101101
  8. SIMVASTATIN [Concomitant]
     Dosage: UNK UKN, UNK
  9. HYDROCHLOROTHIAZIDE [Concomitant]
     Dosage: UNK UKN, UNK
  10. POTASSIUM [Concomitant]
     Dosage: UNK UKN, UNK

REACTIONS (3)
  - DENTAL DISCOMFORT [None]
  - TOOTHACHE [None]
  - NAUSEA [None]
